FAERS Safety Report 9291281 (Version 1)
Quarter: 2012Q4

REPORT INFORMATION
  Report Type: Spontaneous
  Country: US (occurrence: None)
  Receive Date: 20121018
  Receipt Date: 20121018
  Transmission Date: 20130627
  Serious: Yes (Hospitalization)
  Sender: FDA-Public Use
  Company Number: 2012PROUSA02035

PATIENT
  Age: 62 Year
  Sex: Male
  Weight: 83 kg

DRUGS (11)
  1. PROVENGE (SIPULEUCEL-T) SUSPENSION, 250ML [Suspect]
     Indication: PROSTATE CANCER METASTATIC
     Dosage: single
     Route: 042
     Dates: start: 20120914, end: 20120914
  2. PROVENGE (SIPULEUCEL-T) SUSPENSION, 250ML [Suspect]
     Indication: PROSTATE CANCER METASTATIC
     Dosage: single
     Route: 042
     Dates: start: 20121012, end: 20121012
  3. OXYCODONE (OXYCODONE) [Concomitant]
  4. FLOMAX (TAMSULOSIN HYDROCHLORIDE) [Concomitant]
  5. LISINOPRIL (LISINOPRIL) [Concomitant]
  6. SIMVASTATIN (SIMVASTATIN) [Concomitant]
  7. ASA (ACETYLSALICYLIC ACID) [Concomitant]
  8. OXYCONTIN (OXYCODONE HYDROCHLORIDE) [Concomitant]
  9. BICALUTAMIDE (BICALUTAMIDE) [Concomitant]
  10. AMLODIPINE (AMLODIPINE BESILATE) [Concomitant]
  11. METOPROLOL (METOPROLOL TARTRATE) [Concomitant]

REACTIONS (3)
  - Malignant neoplasm progression [None]
  - Metastases to spine [None]
  - Prostate cancer metastatic [None]
